FAERS Safety Report 6567072-X (Version None)
Quarter: 2010Q1

REPORT INFORMATION
  Report Type: 
  Country: None (occurrence: None)
  Receive Date: 20100127
  Receipt Date: 20100119
  Transmission Date: 20100710
  Serious: Yes (Death)
  Sender: FDA-Public Use
  Company Number: WAES 0912USA03012

PATIENT
  Age: 91 Year
  Sex: Female

DRUGS (5)
  1. FOSAMAX [Suspect]
     Indication: OSTEOPOROSIS
     Dosage: 35 MG/WKY
     Route: 048
     Dates: start: 20070822, end: 20080430
  2. ACINON [Concomitant]
  3. DIOVAN [Concomitant]
  4. THYRADIN-S [Concomitant]
  5. PROPIVERINE HYDROCHLORIDE [Concomitant]

REACTIONS (2)
  - GENERAL PHYSICAL CONDITION ABNORMAL [None]
  - PNEUMONIA [None]
